FAERS Safety Report 8999420 (Version 1)
Quarter: 2013Q1

REPORT INFORMATION
  Report Type: Spontaneous
  Country: JP (occurrence: JP)
  Receive Date: 20130103
  Receipt Date: 20130103
  Transmission Date: 20140127
  Serious: Yes (Life-Threatening, Hospitalization, Other)
  Sender: FDA-Public Use
  Company Number: JP-ASTRAZENECA-2012SE96489

PATIENT
  Age: 70 Year
  Sex: Female

DRUGS (4)
  1. SEROQUEL [Suspect]
     Indication: MENTAL DISORDER
     Route: 048
  2. SULPIRIDE [Suspect]
     Indication: MENTAL DISORDER
  3. AMOXAN [Concomitant]
     Indication: MENTAL DISORDER
     Route: 048
  4. MIRTAZAPINE [Concomitant]
     Indication: MENTAL DISORDER
     Route: 048

REACTIONS (6)
  - Suicide attempt [Unknown]
  - Liver disorder [Unknown]
  - Psychosis postoperative [Unknown]
  - Drug ineffective [Unknown]
  - Drug ineffective for unapproved indication [Unknown]
  - Constipation [Unknown]
